FAERS Safety Report 7429600-1 (Version None)
Quarter: 2011Q2

REPORT INFORMATION
  Report Type: 
  Country: None (occurrence: None)
  Receive Date: 20110421
  Receipt Date: 20110414
  Transmission Date: 20111010
  Serious: Yes (Death)
  Sender: FDA-Public Use
  Company Number: B0706758A

PATIENT
  Sex: Female
  Weight: 45 kg

DRUGS (8)
  1. REVOLADE [Suspect]
     Indication: IDIOPATHIC THROMBOCYTOPENIC PURPURA
     Dosage: 12.5MG PER DAY
     Route: 048
     Dates: start: 20110117, end: 20110201
  2. TAKEPRON [Concomitant]
     Indication: GASTRIC ULCER
     Route: 048
  3. BIOFERMIN R [Concomitant]
     Indication: ENTEROCOLITIS
     Route: 048
  4. ALDACTONE [Concomitant]
     Indication: CARDIAC FAILURE
     Route: 048
  5. FUROSEMIDE [Concomitant]
     Indication: CARDIAC FAILURE
     Route: 048
  6. REVOLADE [Suspect]
     Dosage: 25MG PER DAY
     Route: 048
     Dates: start: 20110202, end: 20110216
  7. PREDONINE [Concomitant]
     Indication: IDIOPATHIC THROMBOCYTOPENIC PURPURA
     Dosage: 5MG PER DAY
     Route: 048
  8. SUNRYTHM [Concomitant]
     Indication: ARRHYTHMIA
     Route: 048

REACTIONS (1)
  - BACTERIAL INFECTION [None]
